FAERS Safety Report 5157794-X (Version None)
Quarter: 2006Q4

REPORT INFORMATION
  Report Type: 
  Country: None (occurrence: None)
  Receive Date: 20061127
  Receipt Date: 20051027
  Transmission Date: 20070319
  Serious: Yes (Other)
  Sender: FDA-Public Use
  Company Number: US-ROCHE-422851

PATIENT
  Age: 45 Year
  Sex: Female
  Weight: 50.3 kg

DRUGS (6)
  1. PEGASYS [Suspect]
     Indication: HEPATITIS C
     Dosage: ROUTE: INJ
     Route: 050
     Dates: start: 20050615
  2. COPEGUS [Suspect]
     Indication: HEPATITIS C
     Route: 048
  3. REBETOL [Suspect]
     Indication: HEPATITIS C
     Route: 065
     Dates: start: 20050215
  4. INFERGEN [Suspect]
     Indication: HEPATITIS C
     Route: 065
     Dates: start: 20050215
  5. ARANESP [Suspect]
     Indication: ANAEMIA OF CHRONIC DISEASE
     Route: 065
     Dates: start: 20050315
  6. NEUPOGEN [Concomitant]
     Indication: HEPATITIS C
     Dosage: WHITE BLOOD CELL COUNT DECREASED WAS REPORTED AS A SECOND INDICATION FOR USE.
     Dates: start: 20050215

REACTIONS (5)
  - CONDITION AGGRAVATED [None]
  - PAIN IN EXTREMITY [None]
  - PAIN OF SKIN [None]
  - PORPHYRIA NON-ACUTE [None]
  - SERUM FERRITIN INCREASED [None]
